FAERS Safety Report 9734960 (Version 2)
Quarter: 2014Q1

REPORT INFORMATION
  Report Type: Spontaneous
  Country: US (occurrence: US)
  Receive Date: 20131206
  Receipt Date: 20140128
  Transmission Date: 20141002
  Serious: Yes (Hospitalization)
  Sender: FDA-Public Use
  Company Number: US-PFIZER INC-2013346005

PATIENT
  Age: 50 Year
  Sex: Male

DRUGS (1)
  1. VFEND [Suspect]
     Indication: MENINGITIS COCCIDIOIDES
     Dosage: 400 MG, 2X/DAY
     Dates: start: 20131017

REACTIONS (1)
  - Cholecystitis [Unknown]
